FAERS Safety Report 24693261 (Version 1)
Quarter: 2024Q4

REPORT INFORMATION
  Report Type: Spontaneous
  Country: DE (occurrence: DE)
  Receive Date: 20241203
  Receipt Date: 20241203
  Transmission Date: 20250115
  Serious: Yes (Other)
  Sender: TEVA
  Company Number: DE-TEVA-VS-3270235

PATIENT
  Age: 37 Year
  Sex: Male

DRUGS (2)
  1. MORPHINE [Suspect]
     Active Substance: MORPHINE
     Indication: Drug abuse
     Route: 048
  2. CODEINE [Suspect]
     Active Substance: CODEINE
     Indication: Drug abuse
     Route: 048

REACTIONS (2)
  - Aggression [Unknown]
  - Drug abuse [Unknown]
